FAERS Safety Report 16659039 (Version 1)
Quarter: 2019Q3

REPORT INFORMATION
  Report Type: Spontaneous
  Country: BR (occurrence: BR)
  Receive Date: 20190801
  Receipt Date: 20190801
  Transmission Date: 20191004
  Serious: Yes (Hospitalization, Other)
  Sender: FDA-Public Use
  Company Number: BR-AMGEN-BRASP2013084000

PATIENT
  Age: 50 Year
  Sex: Female
  Weight: 76 kg

DRUGS (7)
  1. ARAVA [Concomitant]
     Active Substance: LEFLUNOMIDE
     Indication: RHEUMATOID ARTHRITIS
     Dosage: 1 TABLET OF STRENGHT 20 MG ONCE IN A DAY, ALTERNATIVE DAYS
     Route: 048
     Dates: start: 2012, end: 2017
  2. CORUS [Concomitant]
     Active Substance: LOSARTAN POTASSIUM
     Indication: HYPERTENSION
     Dosage: 1 TABLET OF STRENGTH 50 MG, ONCE A DAY
     Route: 048
  3. PREDNISONE. [Concomitant]
     Active Substance: PREDNISONE
     Dosage: 1 TABLET OF STRENGTH 5 MG, ONCE A DAY
     Route: 048
  4. MODURETIC 5-50 [Concomitant]
     Active Substance: AMILORIDE HYDROCHLORIDE\HYDROCHLOROTHIAZIDE
     Dosage: 1 TABLET OF STRENGTH 50 MG, ONCE A DAY
     Route: 048
  5. ENBREL [Suspect]
     Active Substance: ETANERCEPT
     Indication: RHEUMATOID ARTHRITIS
     Dosage: 50 MILLIGRAM, QWK
     Route: 058
     Dates: start: 2012, end: 2017
  6. METICORTEN [Concomitant]
     Active Substance: PREDNISONE
     Dosage: UNK
  7. ALENIA [BUDESONIDE;FORMOTEROL FUMARATE] [Concomitant]
     Indication: BRONCHITIS
     Dosage: UNK

REACTIONS (5)
  - Injection site discolouration [Recovered/Resolved]
  - Injection site erythema [Unknown]
  - Blood pressure increased [Recovered/Resolved]
  - Labyrinthitis [Recovered/Resolved]
  - Injection site swelling [Unknown]

NARRATIVE: CASE EVENT DATE: 2017
